FAERS Safety Report 6316321-1 (Version None)
Quarter: 2009Q3

REPORT INFORMATION
  Report Type: 
  Country: None (occurrence: None)
  Receive Date: 20090820
  Receipt Date: 20090812
  Transmission Date: 20100115
  Serious: Yes (Other)
  Sender: FDA-Public Use
  Company Number: A0793521A

PATIENT
  Age: 36 Year
  Sex: Female

DRUGS (4)
  1. LAMICTAL [Suspect]
     Dosage: 200MG TWICE PER DAY
     Route: 048
     Dates: start: 20060101
  2. BROMOCRIPTINE [Suspect]
     Dosage: 1.75MG THREE TIMES PER DAY
     Dates: start: 20090401
  3. DEXAMETHASONE [Suspect]
     Indication: FERTILITY INCREASED
     Dosage: .375MG PER DAY
     Dates: start: 20090301
  4. NO CONCURRENT MEDICATION [Concomitant]

REACTIONS (3)
  - CONVULSION [None]
  - DRUG INTERACTION [None]
  - PRODUCT QUALITY ISSUE [None]
